FAERS Safety Report 6492413-1 (Version None)
Quarter: 2009Q4

REPORT INFORMATION
  Report Type: 
  Country: None (occurrence: None)
  Receive Date: 20091208
  Receipt Date: 20091126
  Transmission Date: 20100525
  Serious: Yes (Other)
  Sender: FDA-Public Use
  Company Number: 2009AP004891

PATIENT

DRUGS (1)
  1. ALENDRONATE SODIUM [Suspect]
     Indication: RHEUMATOID ARTHRITIS

REACTIONS (3)
  - BONE FORMATION DECREASED [None]
  - FEMUR FRACTURE [None]
  - PATHOLOGICAL FRACTURE [None]
